FAERS Safety Report 10672068 (Version 1)
Quarter: 2014Q4

REPORT INFORMATION
  Report Type: Spontaneous
  Country: US (occurrence: None)
  Receive Date: 20141222
  Receipt Date: 20141222
  Transmission Date: 20150529
  Serious: Yes (Other)
  Sender: FDA-Public Use
  Company Number: None

PATIENT
  Age: 59 Year
  Weight: 69 kg

DRUGS (2)
  1. INTERFERON ALFA 2B [Suspect]
     Active Substance: INTERFERON ALFA-2B
     Dosage: 3 MU SQ TIW X 24 WEEKS
     Dates: start: 20110721, end: 20111222
  2. DACARBAZINE. [Suspect]
     Active Substance: DACARBAZINE
     Indication: MALIGNANT MELANOMA
     Dosage: 850/MG/M2 IV DAY 1 @ 29
     Dates: start: 20110519, end: 20110616

REACTIONS (1)
  - Ductal adenocarcinoma of pancreas [None]

NARRATIVE: CASE EVENT DATE: 20141211
